FAERS Safety Report 15780341 (Version 1)
Quarter: 2019Q1

REPORT INFORMATION
  Report Type: Report from Study
  Country: US (occurrence: US)
  Receive Date: 20190102
  Receipt Date: 20190102
  Transmission Date: 20190417
  Serious: Yes (Other)
  Sender: FDA-Public Use
  Company Number: US-ROCHE-2119930

PATIENT
  Sex: Male

DRUGS (3)
  1. CELLCEPT [Suspect]
     Active Substance: MYCOPHENOLATE MOFETIL\MYCOPHENOLATE MOFETIL HYDROCHLORIDE
     Indication: MYASTHENIA GRAVIS
     Dosage: 200 MG/ML, 2.5 ML
     Route: 048
  2. CELLCEPT [Suspect]
     Active Substance: MYCOPHENOLATE MOFETIL\MYCOPHENOLATE MOFETIL HYDROCHLORIDE
     Indication: MYASTHENIA GRAVIS
     Route: 048
  3. CELLCEPT [Suspect]
     Active Substance: MYCOPHENOLATE MOFETIL\MYCOPHENOLATE MOFETIL HYDROCHLORIDE
     Dosage: TAKE 2.5 ML BY MOUTH THREE TIMES DAILY
     Route: 048

REACTIONS (9)
  - Retinal tear [Unknown]
  - Neoplasm malignant [Unknown]
  - Rib fracture [Unknown]
  - Dementia Alzheimer^s type [Unknown]
  - Intentional product use issue [Unknown]
  - Thrombosis [Unknown]
  - Hypoacusis [Unknown]
  - Off label use [Unknown]
  - Chest pain [Unknown]
